FAERS Safety Report 20680748 (Version 4)
Quarter: 2022Q4

REPORT INFORMATION
  Report Type: Spontaneous
  Country: US (occurrence: US)
  Receive Date: 20220406
  Receipt Date: 20221109
  Transmission Date: 20230112
  Serious: No
  Sender: FDA-Public Use
  Company Number: US-DSJP-DSU-2022-112188

PATIENT
  Sex: Female

DRUGS (1)
  1. ENHERTU [Suspect]
     Active Substance: FAM-TRASTUZUMAB DERUXTECAN-NXKI
     Indication: Breast cancer metastatic
     Dosage: UNK
     Route: 065

REACTIONS (4)
  - Fatigue [Recovered/Resolved]
  - Nausea [Recovered/Resolved]
  - Vomiting [Unknown]
  - Dehydration [Unknown]
